FAERS Safety Report 8069439-X (Version None)
Quarter: 2011Q4

REPORT INFORMATION
  Report Type: 
  Country: None (occurrence: None)
  Receive Date: 20111221
  Receipt Date: 20111019
  Transmission Date: 20120403
  Serious: Yes (Hospitalization)
  Sender: FDA-Public Use
  Company Number: PHEH2011US07336

PATIENT
  Age: 31 Year
  Sex: Female

DRUGS (1)
  1. EXJADE [Suspect]
     Indication: SICKLE CELL ANAEMIA
     Dosage: 3500 MG, DAILY, ORAL
     Route: 048
     Dates: start: 20080512, end: 20110926

REACTIONS (1)
  - SICKLE CELL ANAEMIA WITH CRISIS [None]
